FAERS Safety Report 6842457-2 (Version None)
Quarter: 2010Q3

REPORT INFORMATION
  Report Type: 
  Country: None (occurrence: None)
  Receive Date: 20100714
  Receipt Date: 20070725
  Transmission Date: 20110219
  Serious: No
  Sender: FDA-Public Use
  Company Number: PFIZER INC-2007063676

PATIENT
  Sex: Female

DRUGS (6)
  1. CHANTIX [Suspect]
     Indication: EX-TOBACCO USER
     Dates: start: 20070703, end: 20070723
  2. ALBUTEROL [Concomitant]
  3. FLOVENT [Concomitant]
  4. OTHER RESPIRATORY SYSTEM PRODUCTS [Concomitant]
  5. OMEPRAZOLE [Concomitant]
  6. MONTELUKAST SODIUM [Concomitant]

REACTIONS (1)
  - NAUSEA [None]
